FAERS Safety Report 13906034 (Version 2)
Quarter: 2017Q3

REPORT INFORMATION
  Report Type: Spontaneous
  Country: FR (occurrence: FR)
  Receive Date: 20170825
  Receipt Date: 20170831
  Transmission Date: 20171127
  Serious: Yes (Other)
  Sender: FDA-Public Use
  Company Number: FR-PFIZER INC-2017365970

PATIENT
  Age: 17 Year
  Sex: Female

DRUGS (9)
  1. RIMACTAN [Interacting]
     Active Substance: RIFAMPIN
     Indication: PRURITUS
     Dosage: 300 MG, UNK (POSOLOGY OF 1 TO 3 CAPSULES DAILY)
     Route: 048
     Dates: start: 2015
  2. SPASFON [Concomitant]
     Active Substance: PHLOROGLUCINOL\1,3,5-TRIMETHOXYBENZENE
     Dosage: UNK
  3. HYDREA [Concomitant]
     Active Substance: HYDROXYUREA
     Dosage: 500 MG, TID
  4. EUPANTOL [Suspect]
     Active Substance: PANTOPRAZOLE SODIUM
     Indication: GASTRITIS
     Dosage: 100 MG, QD (60 MG IN THE MORNING AND 40 MG IN THE EVENING)
     Route: 048
     Dates: start: 2015
  5. GAVISCON [Interacting]
     Active Substance: ALUMINUM HYDROXIDE\MAGNESIUM CARBONATE
     Indication: PAIN
     Dosage: UNK
     Dates: start: 2015
  6. SPECIAFOLDINE [Concomitant]
     Active Substance: FOLIC ACID
     Dosage: 1 DF, 4X/DAY (QID)
     Route: 065
  7. DELURSAN [Concomitant]
     Active Substance: URSODIOL
     Dosage: 500 MG, 2X/DAY
  8. DAFALGAN CODEINE [Concomitant]
     Active Substance: ACETAMINOPHEN\CODEINE PHOSPHATE
     Dosage: UNK
  9. ORACILLINE [Concomitant]
     Active Substance: PENICILLIN V
     Dosage: 1 MILLION IU, 2X/DAY

REACTIONS (4)
  - Drug interaction [Unknown]
  - Drug ineffective [Not Recovered/Not Resolved]
  - Hiatus hernia [Unknown]
  - Oesophagitis [Not Recovered/Not Resolved]

NARRATIVE: CASE EVENT DATE: 20170810
